FAERS Safety Report 12816234 (Version 1)
Quarter: 2016Q4

REPORT INFORMATION
  Report Type: Spontaneous
  Country: US (occurrence: US)
  Receive Date: 20161004
  Receipt Date: 20161004
  Transmission Date: 20170207
  Serious: No
  Sender: FDA-Public Use
  Company Number: None

PATIENT

DRUGS (1)
  1. XIIDRA [Suspect]
     Active Substance: LIFITEGRAST
     Indication: DRY EYE
     Dosage: ?          QUANTITY:2 DROP(S);?
     Route: 047
     Dates: start: 20160905

REACTIONS (3)
  - Application site pain [None]
  - Ocular hyperaemia [None]
  - Eye irritation [None]

NARRATIVE: CASE EVENT DATE: 20160905
